FAERS Safety Report 6406152-6 (Version None)
Quarter: 2009Q4

REPORT INFORMATION
  Report Type: 
  Country: None (occurrence: None)
  Receive Date: 20091019
  Receipt Date: 20091007
  Transmission Date: 20100525
  Serious: Yes (Other)
  Sender: FDA-Public Use
  Company Number: US-ELI_LILLY_AND_COMPANY-US200910002458

PATIENT
  Age: 39 Year
  Sex: Male

DRUGS (2)
  1. FLUOXETINE HCL [Suspect]
     Dosage: 20 MG, DAILY (1/D)
     Route: 065
  2. FLUOXETINE HCL [Interacting]
     Dosage: 40 MG, DAILY (1/D)
     Route: 065

REACTIONS (12)
  - ANXIETY [None]
  - ATAXIA [None]
  - BLOOD PRESSURE ABNORMAL [None]
  - DIZZINESS [None]
  - DRUG INEFFECTIVE [None]
  - DRUG INTERACTION [None]
  - FLUSHING [None]
  - HEADACHE [None]
  - HYPERHIDROSIS [None]
  - NAUSEA [None]
  - PARAESTHESIA [None]
  - TREMOR [None]
